FAERS Safety Report 5509757-X (Version None)
Quarter: 2007Q4

REPORT INFORMATION
  Report Type: 
  Country: None (occurrence: None)
  Receive Date: 20071107
  Receipt Date: 20071107
  Transmission Date: 20080405
  Serious: Yes (Hospitalization)
  Sender: FDA-Public Use
  Company Number: None

PATIENT
  Sex: Female
  Weight: 64.54 kg

DRUGS (4)
  1. CISPLATIN [Suspect]
     Dosage: 88 MG
  2. DOXORUBICIN HYDROCHLORIDE [Suspect]
     Dosage: 79 MG
  3. G-CSF (FILGRASTIM, AMGEN) [Suspect]
     Dosage: 6 MG
  4. TAXOL [Suspect]
     Dosage: 282 MG

REACTIONS (16)
  - ANOXIA [None]
  - BLOOD CREATININE INCREASED [None]
  - BLOOD UREA INCREASED [None]
  - CULTURE WOUND POSITIVE [None]
  - HAEMOGLOBIN DECREASED [None]
  - HYPOTENSION [None]
  - HYPOVENTILATION [None]
  - HYPOXIA [None]
  - INFUSION SITE EXTRAVASATION [None]
  - LETHARGY [None]
  - NEUTROPHIL COUNT DECREASED [None]
  - PLATELET COUNT DECREASED [None]
  - PYREXIA [None]
  - STAPHYLOCOCCAL INFECTION [None]
  - UNRESPONSIVE TO STIMULI [None]
  - WHITE BLOOD CELL COUNT DECREASED [None]
